FAERS Safety Report 5514889-6 (Version None)
Quarter: 2007Q4

REPORT INFORMATION
  Report Type: 
  Country: None (occurrence: None)
  Receive Date: 20071113
  Receipt Date: 20060921
  Transmission Date: 20080405
  Serious: No
  Sender: FDA-Public Use
  Company Number: A0620970A

PATIENT
  Age: 76 Year
  Sex: Male

DRUGS (15)
  1. COREG [Suspect]
     Dosage: 3.125MG TWICE PER DAY
     Route: 048
     Dates: start: 20060907
  2. OXYGEN [Concomitant]
  3. SPIRONOLACTONE [Concomitant]
  4. LEUTROL (ZILEUTON) [Concomitant]
  5. POTASSIUM CHLORIDE [Concomitant]
  6. TRICOR [Concomitant]
  7. METFORMIN HCL [Concomitant]
  8. FUROSEMIDE [Concomitant]
  9. AVANDIA [Concomitant]
  10. COMBIVENT [Concomitant]
  11. SPIRIVA [Concomitant]
  12. ALBUTEROL [Concomitant]
  13. KLOR-CON [Concomitant]
  14. XOPENEX [Concomitant]
  15. BIPAP [Concomitant]

REACTIONS (2)
  - BLOOD GLUCOSE INCREASED [None]
  - DIZZINESS [None]
